FAERS Safety Report 16831803 (Version 1)
Quarter: 2019Q3

REPORT INFORMATION
  Report Type: Spontaneous
  Country: GB (occurrence: GB)
  Receive Date: 20190920
  Receipt Date: 20190920
  Transmission Date: 20191005
  Serious: Yes (Disabling)
  Sender: FDA-Public Use
  Company Number: GB-TEVA-2019-GB-1109889

PATIENT
  Age: 81 Year
  Sex: Female
  Weight: 10 kg

DRUGS (18)
  1. BUPRENORPHINE. [Concomitant]
     Active Substance: BUPRENORPHINE
     Dates: start: 20190529
  2. FUROSEMIDE. [Concomitant]
     Active Substance: FUROSEMIDE
     Dosage: MORNING. 20 MG
     Dates: start: 20181206
  3. GABAPENTIN. [Concomitant]
     Active Substance: GABAPENTIN
     Dosage: 2 DOSAGE FORMS
     Dates: start: 20190325
  4. BISOPROLOL [Concomitant]
     Active Substance: BISOPROLOL
     Dates: start: 20180717
  5. WARFARIN SODIUM. [Concomitant]
     Active Substance: WARFARIN SODIUM
     Dosage: AS DIRECTED 1 DOSAGE FORMS
     Dates: start: 20190423
  6. NICORANDIL [Concomitant]
     Active Substance: NICORANDIL
     Dosage: 2 DOSAGE FORMS
     Dates: start: 20180830
  7. MEBEVERINE HYDROCHLORIDE [Concomitant]
     Active Substance: MEBEVERINE HYDROCHLORIDE
     Dosage: THREE TIMES A DAY
     Dates: start: 20190102
  8. ATORVASTATIN [Concomitant]
     Active Substance: ATORVASTATIN
     Dosage: 1 DOSAGE FORMS
     Dates: start: 20181010
  9. OPTIVE [Concomitant]
     Active Substance: CARBOXYMETHYLCELLULOSE SODIUM\GLYCERIN
     Dosage: 4 GTT
     Dates: start: 20190108
  10. PARACETAMOL [Concomitant]
     Active Substance: ACETAMINOPHEN
     Dosage: TAKE 1 OR 2 4 TIMES/DAY
     Dates: start: 20190214
  11. ONDANSETRON [Suspect]
     Active Substance: ONDANSETRON
     Dates: start: 20190827
  12. ALGESAL [Concomitant]
     Active Substance: DIETHYLAMINE SALICYLATE
     Dosage: APPLY
     Dates: start: 20190423
  13. CYCLIZINE [Concomitant]
     Active Substance: CYCLIZINE
     Dosage: THREE TIMES A DAY 1 DOSAGE FORM
     Dates: start: 20190712, end: 20190722
  14. SEVODYNE [Concomitant]
     Route: 062
     Dates: start: 20190725
  15. RANITIDINE. [Concomitant]
     Active Substance: RANITIDINE
     Dosage: 2 DOSAGE FORMS
     Dates: start: 20190501
  16. MOVICOL [Concomitant]
     Active Substance: POLYETHYLENE GLYCOL 3350\POTASSIUM CHLORIDE\SODIUM BICARBONATE\SODIUM CHLORIDE
     Dosage: TAKE 1-2 DAILY
     Dates: start: 20181010
  17. PIVMECILLINAM [Concomitant]
     Active Substance: AMDINOCILLIN PIVOXIL
     Dosage: FOR 3 DAYS 3 DOSAGE FORMS
     Dates: start: 20190805, end: 20190809
  18. SPIRONOLACTONE. [Concomitant]
     Active Substance: SPIRONOLACTONE
     Dosage: 1 DOSAGE FORMS
     Dates: start: 20190326

REACTIONS (4)
  - Headache [Recovered/Resolved]
  - Back pain [Unknown]
  - Vision blurred [Recovered/Resolved]
  - Chest pain [Recovered/Resolved]

NARRATIVE: CASE EVENT DATE: 20190827
